FAERS Safety Report 8562368-4 (Version None)
Quarter: 2012Q3

REPORT INFORMATION
  Report Type: 
  Country: None (occurrence: None)
  Receive Date: 20120802
  Receipt Date: 20120713
  Transmission Date: 20120928
  Serious: No
  Sender: FDA-Public Use
  Company Number: US-AMGEN-USASP2012043713

PATIENT
  Age: 43 Year
  Sex: Male

DRUGS (2)
  1. REMICADE [Concomitant]
     Dosage: UNK
  2. ENBREL [Suspect]
     Indication: PSORIATIC ARTHROPATHY
     Dosage: 50 MG, QWK
     Dates: start: 20040101, end: 20080101

REACTIONS (4)
  - WHEELCHAIR USER [None]
  - INJECTION SITE PAIN [None]
  - THERAPEUTIC RESPONSE DECREASED [None]
  - C-REACTIVE PROTEIN INCREASED [None]
